FAERS Safety Report 8487468-9 (Version None)
Quarter: 2012Q2

REPORT INFORMATION
  Report Type: 
  Country: None (occurrence: None)
  Receive Date: 20120606
  Receipt Date: 20120525
  Transmission Date: 20120825
  Serious: Yes (Other)
  Sender: FDA-Public Use
  Company Number: 2012032223

PATIENT
  Sex: Female

DRUGS (10)
  1. BERINERT [Suspect]
     Indication: POLYCYSTIC OVARIES
     Dosage: (1000 UNITS X1 INTRAVENOUS (NOT OTHERWISE SPECIFIED))
     Route: 042
     Dates: start: 20120202, end: 20120202
  2. BERINERT [Suspect]
     Indication: HEREDITARY ANGIOEDEMA
     Dosage: (1000 UNITS X1 INTRAVENOUS (NOT OTHERWISE SPECIFIED))
     Route: 042
     Dates: start: 20120202, end: 20120202
  3. METFFORMIN HYDROCHLORIDE [Suspect]
     Indication: POLYCYSTIC OVARIES
     Dosage: SEE IMAGE
     Route: 048
  4. NASONEX [Concomitant]
  5. FLONASE [Concomitant]
  6. THYROID TAB [Concomitant]
  7. ALBUTEROL HFA (SALBUTAMOL) [Concomitant]
  8. PROMETRIUM [Concomitant]
  9. CLOMID [Concomitant]
  10. ASPIRIN [Concomitant]

REACTIONS (4)
  - DRUG DISPENSING ERROR [None]
  - MATERNAL EXPOSURE DURING PREGNANCY [None]
  - ABORTION SPONTANEOUS [None]
  - PREGNANCY [None]
